FAERS Safety Report 6595561-0 (Version None)
Quarter: 2010Q1

REPORT INFORMATION
  Report Type: 
  Country: None (occurrence: None)
  Receive Date: 20100223
  Receipt Date: 20100212
  Transmission Date: 20100710
  Serious: Yes (Hospitalization)
  Sender: FDA-Public Use
  Company Number: FR-GENZYME-FABR-1001149

PATIENT
  Sex: Male
  Weight: 55 kg

DRUGS (3)
  1. FABRAZYME [Suspect]
     Indication: FABRY'S DISEASE
     Dosage: 35 MG, UNK
     Route: 042
     Dates: start: 20091106
  2. POLARAMINE [Concomitant]
     Indication: PREMEDICATION
     Dosage: UNK
     Dates: start: 20100205
  3. ACETAMINOPHEN [Concomitant]
     Indication: PREMEDICATION
     Dosage: UNK
     Dates: start: 20100205

REACTIONS (2)
  - PYREXIA [None]
  - RASH MORBILLIFORM [None]
